FAERS Safety Report 8616640-X (Version None)
Quarter: 2012Q3

REPORT INFORMATION
  Report Type: 
  Country: None (occurrence: None)
  Receive Date: 20120823
  Receipt Date: 20120816
  Transmission Date: 20120928
  Serious: Yes (Hospitalization)
  Sender: FDA-Public Use
  Company Number: FR-009507513-1208FRA007792

PATIENT

DRUGS (9)
  1. PREVISCAN [Suspect]
     Dosage: UNK
     Route: 048
     Dates: start: 20120413, end: 20120425
  2. LERCANIDIPINE [Concomitant]
     Route: 048
  3. AMITRIPTYLINE HYDROCHLORIDE [Concomitant]
     Route: 048
  4. NOROXIN [Suspect]
     Indication: PYELONEPHRITIS
     Dosage: UNK
     Route: 048
     Dates: start: 20120403, end: 20120424
  5. TRAMADOL HCL [Concomitant]
     Route: 048
  6. PREVISCAN [Suspect]
     Dosage: UNK
     Route: 048
     Dates: end: 20120322
  7. TOPALGIC (SUPROFEN) [Suspect]
     Route: 048
  8. CACIT VITAMINE D3 [Concomitant]
     Route: 048
  9. NEBIVOLOL [Concomitant]
     Route: 048

REACTIONS (1)
  - INTERNATIONAL NORMALISED RATIO INCREASED [None]
